FAERS Safety Report 18346427 (Version 4)
Quarter: 2022Q2

REPORT INFORMATION
  Report Type: Report from Study
  Country: CO (occurrence: CO)
  Receive Date: 20201005
  Receipt Date: 20220408
  Transmission Date: 20220721
  Serious: Yes (Death, Hospitalization)
  Sender: FDA-Public Use
  Company Number: CO-TAKEDA-2020TUS041320

PATIENT
  Age: 51 Year
  Sex: Female
  Weight: 75 kg

DRUGS (3)
  1. IXAZOMIB [Suspect]
     Active Substance: IXAZOMIB
     Indication: Plasma cell myeloma
     Dosage: 4 MILLIGRAM
     Route: 048
     Dates: start: 20200928
  2. INSULIN NOS [Concomitant]
     Active Substance: INSULIN NOS
     Dosage: UNK
     Route: 058
  3. DEXAMETHASONE [Concomitant]
     Active Substance: DEXAMETHASONE
     Dosage: UNK
     Route: 048

REACTIONS (9)
  - Unevaluable event [Fatal]
  - Hyperglycaemia [Recovered/Resolved]
  - Feeling cold [Recovered/Resolved]
  - Asthenia [Recovered/Resolved]
  - Nausea [Recovered/Resolved]
  - Pyrexia [Recovered/Resolved]
  - Nasal congestion [Not Recovered/Not Resolved]
  - Dizziness [Recovered/Resolved]
  - Vomiting [Recovered/Resolved]

NARRATIVE: CASE EVENT DATE: 20200928
